FAERS Safety Report 24037153 (Version 1)
Quarter: 2024Q3

REPORT INFORMATION
  Report Type: Spontaneous
  Country: CN (occurrence: CN)
  Receive Date: 20240701
  Receipt Date: 20240701
  Transmission Date: 20241016
  Serious: Yes (Life-Threatening)
  Sender: ABBVIE
  Company Number: CN-ABBVIE-5821742

PATIENT
  Age: 76 Year
  Sex: Female
  Weight: 45 kg

DRUGS (4)
  1. VENETOCLAX [Suspect]
     Active Substance: VENETOCLAX
     Indication: Chronic myelomonocytic leukaemia
     Route: 048
     Dates: start: 20240611, end: 20240618
  2. DECITABINE [Suspect]
     Active Substance: DECITABINE
     Indication: Chronic myelomonocytic leukaemia
     Dosage: 28 MILLIGRAM?DECITABINE FOR INJECTION
     Route: 041
     Dates: start: 20240611, end: 20240617
  3. GRANULOCYTE COLONY-STIMULATING FACTOR NOS [Concomitant]
     Active Substance: GRANULOCYTE COLONY-STIMULATING FACTOR NOS
     Indication: Product used for unknown indication
     Dosage: ONCE IN A DAY
     Route: 058
     Dates: start: 20240623
  4. ETHAMSYLATE [Concomitant]
     Active Substance: ETHAMSYLATE
     Indication: Product used for unknown indication
     Dosage: ONCE IN A DAY
     Route: 041
     Dates: start: 20240623

REACTIONS (1)
  - Myelosuppression [Not Recovered/Not Resolved]

NARRATIVE: CASE EVENT DATE: 20240617
